FAERS Safety Report 8872675 (Version 1)
Quarter: 2012Q4

REPORT INFORMATION
  Report Type: 
  Country: US (occurrence: US)
  Receive Date: 20121026
  Receipt Date: 20121026
  Transmission Date: 20130627
  Serious: No
  Sender: FDA-Public Use
  Company Number: US-AMGEN-USASP2012050918

PATIENT
  Sex: Female
  Weight: 80.73 kg

DRUGS (8)
  1. ENBREL [Suspect]
     Indication: PRODUCT USED FOR UNKNOWN INDICATION
     Dosage: 50 mg, qwk
     Route: 058
  2. PREMARIN [Concomitant]
     Dosage: 0.3 mg, UNK
  3. PREDNISONE [Concomitant]
     Dosage: 20 mg, UNK
  4. ZOLPIDEM [Concomitant]
     Dosage: 10 mg, UNK
  5. TRAMADOL HCL [Concomitant]
     Dosage: 50 mg, UNK
  6. LEVOTHYROXIN [Concomitant]
     Dosage: 200 mug, UNK
  7. FOLIC ACID [Concomitant]
     Dosage: UNK
  8. METHOTREXATE [Concomitant]
     Dosage: 20 mg, UNK

REACTIONS (3)
  - Weight increased [Unknown]
  - Injection site reaction [Unknown]
  - Injection site erythema [Recovered/Resolved]
